FAERS Safety Report 8311912-0 (Version None)
Quarter: 2012Q2

REPORT INFORMATION
  Report Type: 
  Country: None (occurrence: None)
  Receive Date: 20120425
  Receipt Date: 20120418
  Transmission Date: 20120825
  Serious: Yes (Hospitalization, Other)
  Sender: FDA-Public Use
  Company Number: JP-CELGENEUS-087-21880-11012565

PATIENT
  Sex: Male

DRUGS (17)
  1. REVLIMID [Suspect]
     Dosage: 25 MILLIGRAM
     Route: 048
     Dates: start: 20110221
  2. ASPIRIN [Concomitant]
     Dosage: 100 MILLIGRAM
     Route: 065
  3. ALLOPURINOL [Concomitant]
     Dosage: 100 MILLIGRAM
     Route: 048
     Dates: start: 20110119
  4. ACYCLOVIR [Concomitant]
     Indication: PROPHYLAXIS
     Dosage: 200 MILLIGRAM
     Route: 048
     Dates: start: 20110119
  5. ISENTRESS [Concomitant]
     Indication: HIV INFECTION
     Dosage: 800 MILLIGRAM
     Route: 048
     Dates: start: 20110119
  6. PENTAZOCINE LACTATE [Concomitant]
     Indication: ABDOMINAL PAIN
     Route: 048
     Dates: start: 20110122
  7. REVLIMID [Suspect]
     Dosage: 10 MILLIGRAM
     Route: 048
     Dates: start: 20110215
  8. REVLIMID [Suspect]
     Indication: MULTIPLE MYELOMA
     Dosage: 25 MILLIGRAM
     Route: 048
     Dates: start: 20110119, end: 20110123
  9. REBAMIPIDE [Concomitant]
     Dosage: 200 MILLIGRAM
     Route: 048
     Dates: start: 20110119
  10. SCOPOLAMINE [Concomitant]
     Indication: ABDOMINAL PAIN
     Route: 048
     Dates: start: 20110122
  11. COTRIM [Concomitant]
     Indication: PROPHYLAXIS
     Dosage: 2 TABLET
     Route: 048
     Dates: start: 20110119
  12. BIOFERMN R [Concomitant]
     Indication: PROPHYLAXIS
     Dosage: 2 TABLET
     Route: 048
     Dates: start: 20110119
  13. VITAMIN B12 [Concomitant]
     Dosage: 1500 MICROGRAM
     Route: 048
     Dates: start: 20110119
  14. TRUVADA [Concomitant]
     Indication: HIV INFECTION
     Dosage: 1 TABLET
     Route: 048
     Dates: start: 20110119
  15. DEXAMETHASONE ACETATE [Suspect]
     Indication: MULTIPLE MYELOMA
     Dosage: 40 MILLIGRAM
     Route: 048
     Dates: start: 20110119, end: 20110121
  16. LANSOPRAZOLE [Concomitant]
     Dosage: 30 MILLIGRAM
     Route: 048
     Dates: start: 20110119, end: 20110123
  17. LEVOFLOXACIN [Concomitant]
     Dosage: 400 MILLIGRAM
     Route: 048
     Dates: start: 20110119

REACTIONS (5)
  - INFECTIOUS PERITONITIS [None]
  - NEUTROPENIA [None]
  - INTESTINAL PERFORATION [None]
  - ERYTHEMA [None]
  - HEPATIC FUNCTION ABNORMAL [None]
